FAERS Safety Report 6421376-X (Version None)
Quarter: 2009Q4

REPORT INFORMATION
  Report Type: 
  Country: None (occurrence: None)
  Receive Date: 20091030
  Receipt Date: 20091023
  Transmission Date: 20100525
  Serious: Yes (Death, Hospitalization, Other)
  Sender: FDA-Public Use
  Company Number: PHEH2009US14305

PATIENT
  Sex: Female

DRUGS (18)
  1. EXJADE [Suspect]
     Indication: MYELODYSPLASTIC SYNDROME
     Dosage: 1250 MG DAILY
     Route: 048
  2. CARDIZEM [Concomitant]
     Dosage: 180 MG, QD
     Route: 065
  3. CALCIUM WITH VITAMIN D [Concomitant]
     Dosage: UNK, UNK
     Route: 065
  4. MEGESTROL ACETATE [Concomitant]
     Dosage: UNK, UNK
     Route: 065
  5. AMBIEN [Concomitant]
     Dosage: UNK, UNK
     Route: 065
  6. BENTYL [Concomitant]
     Dosage: UNK, UNK
     Route: 065
  7. THALOMID [Concomitant]
     Dosage: UNK, UNK
     Route: 065
     Dates: start: 20070801
  8. EFFEXOR [Concomitant]
     Dosage: 300 MG, QD
     Route: 065
  9. FOLIC ACID [Concomitant]
     Dosage: UNK, UNK
     Route: 065
  10. XANAX [Concomitant]
     Dosage: UNK, UNK
     Route: 065
  11. ACCUPRIL [Concomitant]
     Dosage: UNK, UNK
     Route: 065
  12. PRILOSEC [Concomitant]
     Dosage: UNK, UNK
     Route: 065
  13. DURAGESIC-100 [Concomitant]
     Dosage: UNK, UNK
  14. ASPIRIN [Concomitant]
     Dosage: UNK, UNK
     Route: 065
  15. ALLOPURINOL [Concomitant]
     Dosage: UNK, UNK
     Route: 065
  16. LEVOTHYROXINE SODIUM [Concomitant]
     Dosage: UNK, UNK
     Route: 065
  17. MAGNESIUM OXIDE [Concomitant]
     Dosage: UNK, UNK
     Route: 065
  18. ARANESP [Concomitant]
     Dosage: UNK, UNK
     Route: 065

REACTIONS (59)
  - ABDOMINAL DISTENSION [None]
  - ABDOMINAL PAIN UPPER [None]
  - ANAEMIA [None]
  - ATRIAL FIBRILLATION [None]
  - BLOOD ALBUMIN DECREASED [None]
  - BLOOD BICARBONATE DECREASED [None]
  - BLOOD GLUCOSE INCREASED [None]
  - BLOOD POTASSIUM INCREASED [None]
  - BREAST CANCER [None]
  - COLITIS [None]
  - CULTURE URINE POSITIVE [None]
  - DEATH [None]
  - DEHYDRATION [None]
  - DIARRHOEA [None]
  - EJECTION FRACTION DECREASED [None]
  - ENDOTRACHEAL INTUBATION [None]
  - EXPLORATIVE LAPAROTOMY [None]
  - FAECES DISCOLOURED [None]
  - FATIGUE [None]
  - GASTROINTESTINAL INFLAMMATION [None]
  - GASTROINTESTINAL NECROSIS [None]
  - GASTROINTESTINAL STOMA COMPLICATION [None]
  - HAEMATOCHEZIA [None]
  - HYPONATRAEMIA [None]
  - HYPOTENSION [None]
  - HYPOVOLAEMIA [None]
  - ILEAL PERFORATION [None]
  - ILEAL ULCER [None]
  - INTERNATIONAL NORMALISED RATIO INCREASED [None]
  - INTESTINAL DILATATION [None]
  - INTESTINAL FISTULA REPAIR [None]
  - INTESTINAL ISCHAEMIA [None]
  - LARGE INTESTINAL ULCER [None]
  - LIVER FUNCTION TEST ABNORMAL [None]
  - LYMPHOCYTE COUNT DECREASED [None]
  - MEAN CELL VOLUME INCREASED [None]
  - MYELODYSPLASTIC SYNDROME [None]
  - NECROSIS ISCHAEMIC [None]
  - NEUTROPHIL PERCENTAGE DECREASED [None]
  - OOPHORECTOMY [None]
  - PERITONEAL INFECTION [None]
  - PERITONITIS [None]
  - PH BODY FLUID DECREASED [None]
  - PLATELET COUNT DECREASED [None]
  - POSITIVE END-EXPIRATORY PRESSURE [None]
  - PYREXIA [None]
  - RENAL FAILURE [None]
  - RENAL FAILURE ACUTE [None]
  - RESPIRATORY FAILURE [None]
  - SEDATION [None]
  - SEROSITIS [None]
  - SMALL INTESTINAL HAEMORRHAGE [None]
  - SMALL INTESTINAL OBSTRUCTION [None]
  - SMALL INTESTINAL RESECTION [None]
  - SPLENOMEGALY [None]
  - TOOTH MALFORMATION [None]
  - UNRESPONSIVE TO STIMULI [None]
  - URINARY TRACT INFECTION [None]
  - WHITE BLOOD CELL COUNT DECREASED [None]
